FAERS Safety Report 5501793-2 (Version None)
Quarter: 2007Q4

REPORT INFORMATION
  Report Type: 
  Country: None (occurrence: None)
  Receive Date: 20071018
  Receipt Date: 20070502
  Transmission Date: 20080405
  Serious: Yes (Other)
  Sender: FDA-Public Use
  Company Number: 2007036257

PATIENT
  Age: 49 Year
  Sex: Male

DRUGS (3)
  1. NEURONTIN [Suspect]
     Indication: ANXIETY
     Dosage: 300 MG
     Dates: start: 20030101
  2. NEURONTIN [Suspect]
     Indication: DEPRESSION
     Dosage: 300 MG
     Dates: start: 20030101
  3. NEURONTIN [Suspect]
     Indication: NERVOUSNESS
     Dosage: 300 MG
     Dates: start: 20030101

REACTIONS (4)
  - AMNESIA [None]
  - CHEST DISCOMFORT [None]
  - CONDITION AGGRAVATED [None]
  - DEPRESSION [None]
